FAERS Safety Report 6043739-7 (Version None)
Quarter: 2009Q1

REPORT INFORMATION
  Report Type: 
  Country: None (occurrence: None)
  Receive Date: 20090120
  Receipt Date: 20090109
  Transmission Date: 20090719
  Serious: Yes (Hospitalization)
  Sender: FDA-Public Use
  Company Number: US-JNJFOC-20090102688

PATIENT
  Age: 77 Year
  Sex: Female
  Weight: 63.5 kg

DRUGS (3)
  1. EXTRA STRENGTH TYLENOL [Suspect]
     Route: 048
  2. EXTRA STRENGTH TYLENOL [Suspect]
     Indication: PAIN
     Dosage: UP TO 4000 MG DAILY, USUALLY LESS
     Route: 048
  3. BENICAR [Concomitant]
     Indication: BLOOD PRESSURE

REACTIONS (6)
  - ARTHRALGIA [None]
  - BACK PAIN [None]
  - FALL [None]
  - HAEMORRHAGE [None]
  - HEAD INJURY [None]
  - PRODUCT CONTAMINATION [None]
